FAERS Safety Report 15765260 (Version 1)
Quarter: 2018Q4

REPORT INFORMATION
  Report Type: Spontaneous
  Country: IT (occurrence: IT)
  Receive Date: 20181227
  Receipt Date: 20181227
  Transmission Date: 20190205
  Serious: Yes (Hospitalization, Other)
  Sender: FDA-Public Use
  Company Number: IT-SA-2018SA389183

PATIENT
  Age: 41 Year
  Sex: Female
  Weight: 39 kg

DRUGS (1)
  1. ALEMTUZUMAB [Suspect]
     Active Substance: ALEMTUZUMAB
     Indication: MULTIPLE SCLEROSIS
     Dosage: UNK
     Route: 042

REACTIONS (7)
  - Dysphagia [Recovered/Resolved]
  - Myopathy [Recovered/Resolved]
  - Balance disorder [Recovered/Resolved]
  - Muscular weakness [Recovered/Resolved]
  - Weight decreased [Recovered/Resolved]
  - Fall [Recovered/Resolved]
  - Hyperthyroidism [Recovered/Resolved]

NARRATIVE: CASE EVENT DATE: 20180705
